FAERS Safety Report 7845740-7 (Version None)
Quarter: 2011Q4

REPORT INFORMATION
  Report Type: 
  Country: None (occurrence: None)
  Receive Date: 20111025
  Receipt Date: 20101112
  Transmission Date: 20120403
  Serious: No
  Sender: FDA-Public Use
  Company Number: US-BAYER-201041462NA

PATIENT
  Age: 54 Year
  Sex: Female
  Weight: 79.365 kg

DRUGS (5)
  1. ADDERALL 5 [Concomitant]
  2. PREVPAC [Concomitant]
  3. ULTRAVIST (PHARMACY BULK) [Suspect]
     Indication: COMPUTERISED TOMOGRAM ABDOMEN
     Dosage: 100 ML TOTAL IN RIGHT ANTECUBITAL AT 2 CC/SEC
     Route: 042
     Dates: start: 20101112, end: 20101112
  4. ULTRAM [Concomitant]
  5. MULTIVITAMIN PREPARATION + MINERAL SUPPLEMENT [Concomitant]

REACTIONS (1)
  - URTICARIA [None]
